FAERS Safety Report 18219319 (Version 3)
Quarter: 2020Q3

REPORT INFORMATION
  Report Type: Spontaneous
  Country: US (occurrence: US)
  Receive Date: 20200901
  Receipt Date: 20200925
  Transmission Date: 20201103
  Serious: Yes (Other)
  Sender: FDA-Public Use
  Company Number: US-GILEAD-2020-0492675

PATIENT
  Age: 61 Year
  Sex: Male
  Weight: 79.41 kg

DRUGS (10)
  1. DEXAMETHASONE. [Concomitant]
     Active Substance: DEXAMETHASONE
     Indication: LUNG INFILTRATION
     Dosage: 6 MG, QD
     Route: 065
     Dates: start: 20200821, end: 20200827
  2. ALBUTEROL. [Concomitant]
     Active Substance: ALBUTEROL
     Dosage: INHALER, 2 PUFFS
     Dates: start: 20200821, end: 20200827
  3. LANTUS [Concomitant]
     Active Substance: INSULIN GLARGINE
     Dosage: 16 UNITS SQ DAILY
     Dates: start: 20200825, end: 20200827
  4. REMDESIVIR. [Suspect]
     Active Substance: REMDESIVIR
     Dosage: 100 MG, QD
     Route: 042
     Dates: start: 20200823, end: 20200827
  5. MELATONIN [Concomitant]
     Active Substance: MELATONIN
     Dosage: 5 MG PO HS PRN
     Dates: start: 20200822, end: 20200827
  6. GUAIFENESIN. [Concomitant]
     Active Substance: GUAIFENESIN
     Dosage: UNK
     Dates: start: 20200821, end: 20200827
  7. HEPARIN [Concomitant]
     Active Substance: HEPARIN SODIUM
     Dosage: UNK
     Dates: start: 20200821, end: 20200827
  8. INSULIN [Concomitant]
     Active Substance: INSULIN NOS
     Dosage: SLIDING SCALE SQ AC AND HS
     Dates: start: 20200824, end: 20200827
  9. REMDESIVIR. [Suspect]
     Active Substance: REMDESIVIR
     Indication: COVID-19
     Dosage: 200 MG, ONCE
     Route: 042
     Dates: start: 20200822, end: 20200822
  10. ACETAMINOPHEN. [Concomitant]
     Active Substance: ACETAMINOPHEN
     Dosage: UNK
     Dates: start: 20200821, end: 20200827

REACTIONS (2)
  - Alanine aminotransferase increased [Unknown]
  - Aspartate aminotransferase increased [Unknown]

NARRATIVE: CASE EVENT DATE: 20200826
